FAERS Safety Report 12549549 (Version 2)
Quarter: 2016Q3

REPORT INFORMATION
  Report Type: Report from Study
  Country: BR (occurrence: BR)
  Receive Date: 20160712
  Receipt Date: 20160721
  Transmission Date: 20161109
  Serious: Yes (Hospitalization, Other)
  Sender: FDA-Public Use
  Company Number: PHHY2016BR002610

PATIENT
  Sex: Male
  Weight: 90 kg

DRUGS (3)
  1. SANDOSTATIN LAR DEPOT [Suspect]
     Active Substance: OCTREOTIDE ACETATE
     Dosage: 40 MG, QMO (2 VIALS OF 20 MG)
     Route: 030
     Dates: start: 201407
  2. SANDOSTATIN LAR DEPOT [Suspect]
     Active Substance: OCTREOTIDE ACETATE
     Indication: NEUROENDOCRINE TUMOUR
     Dosage: 30 MG, QMO (EVERY 28 DAYS)
     Route: 030
     Dates: start: 201406
  3. SANDOSTATIN LAR DEPOT [Suspect]
     Active Substance: OCTREOTIDE ACETATE
     Dosage: 40 MG (30 MG AND 10 MG), EVERY 21 DAYS
     Route: 030

REACTIONS (4)
  - Malignant neoplasm progression [Unknown]
  - Product use issue [Unknown]
  - Liver injury [Unknown]
  - Neoplasm progression [Unknown]
